FAERS Safety Report 23073882 (Version 1)
Quarter: 2023Q4

REPORT INFORMATION
  Report Type: Other
  Country: US (occurrence: None)
  Receive Date: 20231017
  Receipt Date: 20231017
  Transmission Date: 20240109
  Serious: Yes (Death)
  Sender: FDA-Public Use
  Company Number: US-ROCHE-3439403

PATIENT
  Age: 51 Year
  Sex: Female

DRUGS (13)
  1. PHESGO [Suspect]
     Active Substance: HYALURONIDASE-ZZXF\PERTUZUMAB\TRASTUZUMAB
     Indication: Breast cancer female
     Dosage: 1200 MG - 600 MG
     Route: 058
  2. PACLITAXEL [Concomitant]
     Active Substance: PACLITAXEL
     Dosage: STRENGTH: 6 MG/ML
     Route: 042
  3. GRANISETRON [Concomitant]
     Active Substance: GRANISETRON
     Route: 042
  4. DEXAMETHASONE [Concomitant]
     Active Substance: DEXAMETHASONE
     Route: 042
  5. ACETAMINOPHEN [Concomitant]
     Active Substance: ACETAMINOPHEN
     Route: 048
  6. DIPHENHYDRAMINE [Concomitant]
     Active Substance: DIPHENHYDRAMINE
     Route: 042
  7. DIPHENHYDRAMINE [Concomitant]
     Active Substance: DIPHENHYDRAMINE
     Route: 042
  8. FAMOTIDINE [Concomitant]
     Active Substance: FAMOTIDINE
     Route: 042
  9. EPINEPHRINE [Concomitant]
     Active Substance: EPINEPHRINE
     Dosage: STRENGTH: 1MG/ ML
     Route: 030
  10. HYDROCORTISONE [Concomitant]
     Active Substance: HYDROCORTISONE
     Route: 042
  11. METHYLPREDNISOLONE [Concomitant]
     Active Substance: METHYLPREDNISOLONE
     Route: 042
  12. GOSERELIN [Concomitant]
     Active Substance: GOSERELIN
     Route: 058
  13. LIDOCAINE [Concomitant]
     Active Substance: LIDOCAINE
     Route: 023

REACTIONS (1)
  - Septic shock [Fatal]
